FAERS Safety Report 24616576 (Version 3)
Quarter: 2024Q4

REPORT INFORMATION
  Report Type: Report from Study
  Country: US (occurrence: US)
  Receive Date: 20241114
  Receipt Date: 20241127
  Transmission Date: 20250114
  Serious: Yes (Other)
  Sender: ROCHE
  Company Number: US-ROCHE-10000130974

PATIENT
  Age: 44 Year
  Sex: Male
  Weight: 122.47 kg

DRUGS (13)
  1. OCREVUS [Suspect]
     Active Substance: OCRELIZUMAB
     Indication: Multiple sclerosis
     Route: 042
     Dates: start: 20240508
  2. ACETAMINOPHEN [Concomitant]
     Active Substance: ACETAMINOPHEN
  3. AMLODIPINE [Concomitant]
     Active Substance: AMLODIPINE BESYLATE
  4. DULOXETINE [Concomitant]
     Active Substance: DULOXETINE
  5. LIDOCAINE [Concomitant]
     Active Substance: LIDOCAINE
  6. PRAZOSIN [Concomitant]
     Active Substance: PRAZOSIN
  7. PROPRANOLOL [Concomitant]
     Active Substance: PROPRANOLOL HYDROCHLORIDE
  8. PROVIGIL [Concomitant]
     Active Substance: MODAFINIL
  9. TADALAFIL [Concomitant]
     Active Substance: TADALAFIL
  10. TOLTERODINE [Concomitant]
     Active Substance: TOLTERODINE
  11. TRAMADOL [Concomitant]
     Active Substance: TRAMADOL
  12. TRAZODONE [Concomitant]
     Active Substance: TRAZODONE HYDROCHLORIDE
  13. VITAMIN D3 [Concomitant]
     Active Substance: CHOLECALCIFEROL

REACTIONS (1)
  - JC polyomavirus test positive [Unknown]
